FAERS Safety Report 21384407 (Version 4)
Quarter: 2022Q4

REPORT INFORMATION
  Report Type: Spontaneous
  Country: PT (occurrence: PT)
  Receive Date: 20220928
  Receipt Date: 20221115
  Transmission Date: 20230113
  Serious: No
  Sender: FDA-Public Use
  Company Number: PT-ORGANON-O2209PRT001505

PATIENT
  Sex: Female

DRUGS (1)
  1. ETONOGESTREL [Suspect]
     Active Substance: ETONOGESTREL
     Dosage: 1 IMPLANT IN LEFT ARM
     Route: 059

REACTIONS (6)
  - Implant site infection [Recovering/Resolving]
  - Implant site fibrosis [Unknown]
  - Scab [Unknown]
  - Complication associated with device [Not Recovered/Not Resolved]
  - Complication associated with device [Not Recovered/Not Resolved]
  - Wrong technique in product usage process [Unknown]
